FAERS Safety Report 4467953-7 (Version None)
Quarter: 2004Q4

REPORT INFORMATION
  Report Type: 
  Country: None (occurrence: None)
  Receive Date: 20041007
  Receipt Date: 20040930
  Transmission Date: 20050328
  Serious: Yes (Hospitalization)
  Sender: FDA-Public Use
  Company Number: US-JNJFOC-20040903050

PATIENT
  Sex: Female

DRUGS (3)
  1. TOPAMAX [Suspect]
  2. DEPAKOTE [Suspect]
  3. CARBATROL [Suspect]

REACTIONS (5)
  - ALOPECIA [None]
  - ASTHENIA [None]
  - DYSARTHRIA [None]
  - PERFORMANCE STATUS DECREASED [None]
  - TREMOR [None]
